FAERS Safety Report 16943105 (Version 1)
Quarter: 2019Q4

REPORT INFORMATION
  Report Type: Spontaneous
  Country: CN (occurrence: CN)
  Receive Date: 20191021
  Receipt Date: 20191021
  Transmission Date: 20200122
  Serious: Yes (Other)
  Sender: FDA-Public Use
  Company Number: CN-BAXTER-2019BAX020276

PATIENT
  Age: 62 Year
  Sex: Male
  Weight: 55 kg

DRUGS (7)
  1. 0.9% SODIUM CHLORIDE INJECTION [Suspect]
     Active Substance: SODIUM CHLORIDE
     Indication: MEDICATION DILUTION
     Dosage: 0.9%NS250ML+CLINDAMYCIN 1.2G Q12H
     Route: 041
     Dates: start: 20190929, end: 20191006
  2. CLINDAMYCIN PHOSPHATE. [Suspect]
     Active Substance: CLINDAMYCIN PHOSPHATE
     Indication: SUPPORTIVE CARE
     Route: 041
     Dates: start: 20190929, end: 20191006
  3. DEXAMETHASONE. [Suspect]
     Active Substance: DEXAMETHASONE
     Indication: CHEST DISCOMFORT
     Route: 042
     Dates: start: 20191006
  4. PROMETHAZINE [Suspect]
     Active Substance: PROMETHAZINE HYDROCHLORIDE
     Indication: CHEST DISCOMFORT
     Route: 030
     Dates: start: 20191006
  5. 0.9% SODIUM CHLORIDE INJECTION [Suspect]
     Active Substance: SODIUM CHLORIDE
     Indication: MEDICATION DILUTION
     Dosage: 0.9%NS250ML+COMPOUND PORCINE CEREBROSIDE AND GANGLIOSIDE 10ML QD
     Route: 065
     Dates: start: 20190929
  6. DEXAMETHASONE. [Suspect]
     Active Substance: DEXAMETHASONE
     Indication: CHILLS
  7. PROMETHAZINE [Suspect]
     Active Substance: PROMETHAZINE HYDROCHLORIDE
     Indication: CHILLS

REACTIONS (3)
  - Hyperpyrexia [Recovering/Resolving]
  - Chest discomfort [Recovering/Resolving]
  - Chills [Recovering/Resolving]

NARRATIVE: CASE EVENT DATE: 20191006
